FAERS Safety Report 6061039-6 (Version None)
Quarter: 2009Q1

REPORT INFORMATION
  Report Type: 
  Country: None (occurrence: None)
  Receive Date: 20090129
  Receipt Date: 20090129
  Transmission Date: 20090719
  Serious: No
  Sender: FDA-Public Use
  Company Number: None

PATIENT
  Age: 55 Year
  Sex: Female
  Weight: 87.9978 kg

DRUGS (2)
  1. XYREM [Suspect]
     Indication: FIBROMYALGIA
     Dosage: 4.75 2 PER NIGHT PO
     Route: 048
     Dates: start: 20070210, end: 20090126
  2. XYREM [Suspect]
     Indication: INSOMNIA
     Dosage: 4.75 2 PER NIGHT PO
     Route: 048
     Dates: start: 20070210, end: 20090126

REACTIONS (4)
  - BODY TEMPERATURE DECREASED [None]
  - OROPHARYNGEAL PAIN [None]
  - SWOLLEN TONGUE [None]
  - TONGUE DISCOLOURATION [None]
